FAERS Safety Report 9345686 (Version 2)
Quarter: 2013Q3

REPORT INFORMATION
  Report Type: Spontaneous
  Country: US (occurrence: US)
  Receive Date: 20130613
  Receipt Date: 20130702
  Transmission Date: 20140515
  Serious: Yes (Hospitalization, Other)
  Sender: FDA-Public Use
  Company Number: PHEH2013US012644

PATIENT
  Age: 70 Year
  Sex: Female

DRUGS (14)
  1. DIOVAN [Suspect]
     Dosage: 320 MG, QD
     Dates: start: 1999
  2. ARIMIDEX [Concomitant]
     Dosage: UNK UKN, UNK
  3. HYDROCHLOROTHIAZIDE [Concomitant]
     Dosage: UNK UKN, UNK
  4. CALCIUM [Concomitant]
     Dosage: UNK UKN, UNK
  5. GLUCOSAMINE [Concomitant]
     Dosage: UNK UKN, UNK
  6. OMEPRAZOLE [Concomitant]
     Dosage: UNK UKN, UNK
  7. WARFARIN [Concomitant]
     Dosage: UNK UKN, UNK
  8. IRON [Concomitant]
     Dosage: UNK UKN, UNK
  9. D3 [Concomitant]
     Dosage: UNK UKN, UNK
  10. LIPITOR [Concomitant]
  11. VITAMIN C [Concomitant]
  12. AMIDARONE [Concomitant]
  13. FERROUS SULPHATE [Concomitant]
  14. COUMADIN SODIUM [Concomitant]

REACTIONS (5)
  - Ovarian cancer [Unknown]
  - Wound infection [Unknown]
  - Large intestine perforation [Unknown]
  - Sepsis [Unknown]
  - Nausea [Unknown]
